FAERS Safety Report 19240917 (Version 2)
Quarter: 2021Q3

REPORT INFORMATION
  Report Type: Report from Study
  Country: US (occurrence: US)
  Receive Date: 20210511
  Receipt Date: 20210816
  Transmission Date: 20211014
  Serious: Yes (Hospitalization, Other)
  Sender: FDA-Public Use
  Company Number: US-GILEAD-2021-0526568

PATIENT
  Age: 11 Year
  Sex: Male

DRUGS (1)
  1. AZTREONAM LYSINE [Suspect]
     Active Substance: AZTREONAM LYSINE
     Indication: CYSTIC FIBROSIS
     Dosage: 75 MG, TID, 28 DAYS ON 28 DAYS OFF
     Route: 065
     Dates: start: 201612

REACTIONS (6)
  - Cystic fibrosis [Not Recovered/Not Resolved]
  - Gastric disorder [Not Recovered/Not Resolved]
  - Stenotrophomonas infection [Not Recovered/Not Resolved]
  - Weight decreased [Recovered/Resolved]
  - Hypophagia [Recovering/Resolving]
  - Nausea [Not Recovered/Not Resolved]

NARRATIVE: CASE EVENT DATE: 202104
